FAERS Safety Report 5385539-7 (Version None)
Quarter: 2007Q3

REPORT INFORMATION
  Report Type: 
  Country: None (occurrence: None)
  Receive Date: 20070712
  Receipt Date: 20070702
  Transmission Date: 20080115
  Serious: Yes (Other)
  Sender: FDA-Public Use
  Company Number: B0436815A

PATIENT
  Age: 31 Year
  Sex: Female
  Weight: 70 kg

DRUGS (2)
  1. LAMICTAL [Suspect]
     Indication: EPILEPSY
     Dosage: 100MG PER DAY
     Route: 048
     Dates: start: 20051202
  2. TEGRETOL [Concomitant]
     Indication: EPILEPSY
     Route: 065
     Dates: end: 20060201

REACTIONS (5)
  - EPILEPSY [None]
  - FATIGUE [None]
  - INITIAL INSOMNIA [None]
  - INSOMNIA [None]
  - SLEEP DISORDER [None]
